FAERS Safety Report 20016070 (Version 1)
Quarter: 2021Q4

REPORT INFORMATION
  Report Type: Spontaneous
  Country: US (occurrence: None)
  Receive Date: 20211102
  Receipt Date: 20211102
  Transmission Date: 20220303
  Serious: Yes (Hospitalization)
  Sender: FDA-Public Use
  Company Number: None

PATIENT
  Age: 32 Year
  Sex: Female
  Weight: 67.5 kg

DRUGS (4)
  1. CANNABIDIOL\.DELTA.8-TETRAHYDROCANNABINOL [Suspect]
     Active Substance: CANNABIDIOL\.DELTA.8-TETRAHYDROCANNABINOL
     Indication: Product used for unknown indication
     Dates: start: 20211031, end: 20211031
  2. LAMOTRIGINE [Concomitant]
     Active Substance: LAMOTRIGINE
  3. PRISTIQ EXTENDED-RELEASE [Concomitant]
     Active Substance: DESVENLAFAXINE SUCCINATE
  4. VITAMIN D [Concomitant]
     Active Substance: VITAMIN D NOS

REACTIONS (4)
  - Vomiting [None]
  - Euphoric mood [None]
  - Dry mouth [None]
  - Lip disorder [None]

NARRATIVE: CASE EVENT DATE: 20211031
